FAERS Safety Report 4726508-7 (Version None)
Quarter: 2005Q3

REPORT INFORMATION
  Report Type: 
  Country: None (occurrence: None)
  Receive Date: 20050726
  Receipt Date: 20050712
  Transmission Date: 20060218
  Serious: Yes (Disabling, Other)
  Sender: FDA-Public Use
  Company Number: 2005099128

PATIENT
  Sex: Female

DRUGS (1)
  1. PHENYTOIN [Suspect]
     Indication: SYNCOPE
     Dosage: 800 MG (1 IN 1 D), UNKNOWN

REACTIONS (14)
  - ALLODYNIA [None]
  - AREFLEXIA [None]
  - BURNING SENSATION [None]
  - COORDINATION ABNORMAL [None]
  - DIPLOPIA [None]
  - GAIT DISTURBANCE [None]
  - HYPOAESTHESIA [None]
  - HYPOREFLEXIA [None]
  - NERVOUS SYSTEM DISORDER [None]
  - PARAESTHESIA [None]
  - SENSORY DISTURBANCE [None]
  - SOMNOLENCE [None]
  - TENDON DISORDER [None]
  - VISION BLURRED [None]
